FAERS Safety Report 4427288-5 (Version None)
Quarter: 2004Q3

REPORT INFORMATION
  Report Type: 
  Country: None (occurrence: None)
  Receive Date: 20040817
  Receipt Date: 20040721
  Transmission Date: 20050211
  Serious: Yes (Other)
  Sender: FDA-Public Use
  Company Number: 200412477JP

PATIENT
  Age: 61 Year
  Sex: Female
  Weight: 45 kg

DRUGS (6)
  1. KETEK [Suspect]
     Indication: ACUTE SINUSITIS
     Route: 048
     Dates: start: 20040713, end: 20040714
  2. KETEK [Suspect]
     Indication: BRONCHITIS ACUTE
     Route: 048
     Dates: start: 20040713, end: 20040714
  3. MUCODYNE [Concomitant]
     Indication: ACUTE SINUSITIS
     Route: 048
     Dates: start: 20040713, end: 20040714
  4. MUCODYNE [Concomitant]
     Indication: BRONCHITIS ACUTE
     Route: 048
     Dates: start: 20040713, end: 20040714
  5. MEDICON [Concomitant]
     Indication: BRONCHITIS ACUTE
     Route: 048
     Dates: start: 20040713, end: 20040714
  6. BRONCHOLIN [Concomitant]
     Indication: BRONCHITIS ACUTE
     Route: 048
     Dates: start: 20040713, end: 20040714

REACTIONS (2)
  - MUSCULOSKELETAL STIFFNESS [None]
  - PAIN [None]
